FAERS Safety Report 14591615 (Version 1)
Quarter: 2018Q1

REPORT INFORMATION
  Report Type: Spontaneous
  Country: US (occurrence: US)
  Receive Date: 20180302
  Receipt Date: 20180302
  Transmission Date: 20180509
  Serious: No
  Sender: FDA-Public Use
  Company Number: US-ELI_LILLY_AND_COMPANY-US201802011238

PATIENT
  Age: 60 Year
  Sex: Female

DRUGS (1)
  1. HUMATROPE [Suspect]
     Active Substance: SOMATROPIN
     Indication: MUSCLE ATROPHY
     Dosage: UNK, UNKNOWN
     Route: 065

REACTIONS (2)
  - Blood test abnormal [Not Recovered/Not Resolved]
  - Off label use [Unknown]
